FAERS Safety Report 15325736 (Version 1)
Quarter: 2018Q3

REPORT INFORMATION
  Report Type: Report from Study
  Country: BR (occurrence: BR)
  Receive Date: 20180828
  Receipt Date: 20180828
  Transmission Date: 20181010
  Serious: Yes (Other)
  Sender: FDA-Public Use
  Company Number: PHHY2018BR081330

PATIENT
  Age: 82 Year
  Sex: Female
  Weight: 83 kg

DRUGS (4)
  1. DIOVAN AMLO FIX [Suspect]
     Active Substance: AMLODIPINE\VALSARTAN
     Dosage: 1 DF (AMLODIPINE 5, VALSARTAN 160), QD (MORNING)
     Route: 048
  2. CHLORTHALIDONE. [Suspect]
     Active Substance: CHLORTHALIDONE
     Indication: HYPERTENSION
     Dosage: 1 DF, QD (MORNING)
     Route: 048
  3. DIOVAN AMLO FIX [Suspect]
     Active Substance: AMLODIPINE\VALSARTAN
     Indication: HYPERTENSION
     Dosage: 1 DF (AMLODIPINE 10, VALSARTAN 320), QD
     Route: 048
  4. HIGROTON [Suspect]
     Active Substance: CHLORTHALIDONE
     Indication: HYPERTENSION
     Dosage: 0.5 DF, QD (MORNING)
     Route: 048

REACTIONS (8)
  - Blood pressure increased [Unknown]
  - Condition aggravated [Recovering/Resolving]
  - Drug ineffective [Unknown]
  - Memory impairment [Recovering/Resolving]
  - Headache [Unknown]
  - Blood pressure decreased [Unknown]
  - Malaise [Unknown]
  - Wrong technique in product usage process [Recovered/Resolved]

NARRATIVE: CASE EVENT DATE: 201801
